FAERS Safety Report 25961360 (Version 2)
Quarter: 2025Q4

REPORT INFORMATION
  Report Type: Spontaneous
  Country: US (occurrence: US)
  Receive Date: 20251027
  Receipt Date: 20251106
  Transmission Date: 20260118
  Serious: Yes (Life-Threatening, Hospitalization)
  Sender: TEVA
  Company Number: US-TEVA-VS-3384412

PATIENT
  Age: 3 Year
  Sex: Male

DRUGS (6)
  1. CISPLATIN [Suspect]
     Active Substance: CISPLATIN
     Indication: Hepatocellular carcinoma
     Dosage: RECEIVED 4 CYCLES BEFORE LACK OF EFFICACY WAS NOTED
     Route: 065
  2. VINCRISTINE [Suspect]
     Active Substance: VINCRISTINE
     Indication: Hepatocellular carcinoma
     Dosage: RECEIVED 4 CYCLES BEFORE LACK OF EFFICACY WAS NOTED
     Route: 065
  3. DOXORUBICIN [Suspect]
     Active Substance: DOXORUBICIN
     Indication: Hepatocellular carcinoma
     Dosage: RECEIVED 4 CYCLES BEFORE LACK OF EFFICACY WAS NOTED
     Route: 065
  4. YTTRIUM CHLORIDE Y-90 [Suspect]
     Active Substance: YTTRIUM CHLORIDE Y-90
     Indication: Hepatocellular carcinoma
     Dosage: (YTTRIUM 90) 30 MCI OF LOCAL RADIATION WAS ADMINISTERED INTO THE RIGHT HEPATIC ARTERY
     Route: 013
  5. YTTRIUM CHLORIDE Y-90 [Suspect]
     Active Substance: YTTRIUM CHLORIDE Y-90
     Indication: Hepatocellular carcinoma
     Dosage: (YTTRIUM 90) SIX WEEKS LATER, ADDITIONAL YTTRIUM-90 TO THE LEFT HEPATIC ARTERY WITH 6.13 MCI OF R...
     Route: 013
  6. FLUOROURACIL [Suspect]
     Active Substance: FLUOROURACIL
     Indication: Hepatocellular carcinoma
     Dosage: RECEIVED 4 CYCLES BEFORE LACK OF EFFICACY WAS NOTED
     Route: 065

REACTIONS (2)
  - Therapy non-responder [Unknown]
  - Drug-induced liver injury [Recovering/Resolving]
